FAERS Safety Report 9596741 (Version 1)
Quarter: 2013Q4

REPORT INFORMATION
  Report Type: Report from Study
  Country: US (occurrence: US)
  Receive Date: 20131004
  Receipt Date: 20131004
  Transmission Date: 20140711
  Serious: Yes (Other)
  Sender: FDA-Public Use
  Company Number: US-GLAXOSMITHKLINE-Z0018383A

PATIENT
  Age: 66 Year
  Sex: Male
  Weight: 84.5 kg

DRUGS (3)
  1. TRAMETINIB [Suspect]
     Indication: MALIGNANT MELANOMA
     Dosage: 2MG PER DAY
     Route: 048
     Dates: start: 20121210
  2. DABRAFENIB [Suspect]
     Indication: MALIGNANT MELANOMA
     Dosage: 150MG TWICE PER DAY
     Route: 048
     Dates: start: 20121210
  3. ACETAMINOPHEN [Concomitant]
     Indication: PYREXIA
     Dosage: 1000MG THREE TIMES PER DAY
     Route: 048
     Dates: start: 20121218, end: 20130422

REACTIONS (1)
  - Pyrexia [Recovered/Resolved]
